FAERS Safety Report 5154583-7 (Version None)
Quarter: 2006Q4

REPORT INFORMATION
  Report Type: 
  Country: None (occurrence: None)
  Receive Date: 20061114
  Receipt Date: 20061026
  Transmission Date: 20070319
  Serious: Yes (Hospitalization)
  Sender: FDA-Public Use
  Company Number: UKP06000267

PATIENT
  Age: 80 Year
  Sex: Male

DRUGS (17)
  1. ACTONEL [Suspect]
     Dosage: 35 MG, 1/WEEK; ORAL
     Route: 048
     Dates: end: 20060722
  2. PREDNISOLONE [Suspect]
     Dosage: 15 MG, 1/DAY; UNK
     Dates: end: 20060722
  3. WARFARIN SODIUM [Suspect]
     Indication: ATRIAL FIBRILLATION
     Dates: end: 20060722
  4. ATORVASTATIN CALCIUM [Concomitant]
  5. BENDROFLUAZIDE (BENDROFLUMETHIAZIDE) [Concomitant]
  6. BUDESONIDE [Concomitant]
  7. CACIT (CALCIUM CARBONATE) EFFERVESCENT TABLET [Concomitant]
  8. CLARITHROMYCIN [Concomitant]
  9. CO-DYDRAMOL (PARACETAMOL, DIHYDROCODEINE BITARTRATE) [Concomitant]
  10. DIGOXIN [Concomitant]
  11. FERROUS SULFATE TAB [Concomitant]
  12. IPRATROPIUM BROMIDE [Concomitant]
  13. MOVICOL (SODIUM CHLORIDE, SODIUM BICARBONATE, POTASSIUM CHLORIDE, MACR [Concomitant]
  14. OMEPRAZOLE [Concomitant]
  15. SALBUTAMOL [Concomitant]
  16. UNIPHYL [Concomitant]
  17. XALATAN [Concomitant]

REACTIONS (3)
  - DRUG INTERACTION [None]
  - HAEMATEMESIS [None]
  - OESOPHAGEAL ULCER [None]
